FAERS Safety Report 7537002-2 (Version None)
Quarter: 2011Q2

REPORT INFORMATION
  Report Type: 
  Country: None (occurrence: None)
  Receive Date: 20110609
  Receipt Date: 20110602
  Transmission Date: 20111010
  Serious: Yes (Other)
  Sender: FDA-Public Use
  Company Number: PHHY2011GB47707

PATIENT
  Age: 47 Year
  Sex: Female

DRUGS (9)
  1. CLARITHROMYCIN [Concomitant]
     Dosage: UNK
     Dates: start: 20110521
  2. CETIRIZINE HCL [Concomitant]
     Dosage: UNK
     Dates: start: 20110418, end: 20110424
  3. AMPICILLIN SODIUM/SULBACTAM SODIUM [Suspect]
     Dosage: UNK
     Dates: start: 20110516, end: 20110523
  4. OILATUM [Concomitant]
     Dosage: UNK
     Dates: start: 20110418, end: 20110428
  5. OXYTETRACYCLINE [Concomitant]
     Dosage: UNK
     Dates: start: 20110131, end: 20110328
  6. CLOBETASOL PROPIONATE [Concomitant]
     Dosage: UNK
     Dates: start: 20110521
  7. HYDROCORTISONE [Concomitant]
     Dosage: UNK
     Dates: start: 20110421, end: 20110428
  8. LORATADINE [Concomitant]
     Dosage: UNK
     Dates: start: 20110521
  9. AMPICILLIN SODIUM/SULBACTAM SODIUM [Suspect]
     Dosage: UNK
     Dates: start: 20110331, end: 20110407

REACTIONS (1)
  - PHOTOSENSITIVITY REACTION [None]
